FAERS Safety Report 21375345 (Version 1)
Quarter: 2022Q3

REPORT INFORMATION
  Report Type: Spontaneous
  Country: IT (occurrence: IT)
  Receive Date: 20220926
  Receipt Date: 20220926
  Transmission Date: 20221026
  Serious: Yes (Other)
  Sender: FDA-Public Use
  Company Number: None

PATIENT
  Age: 42 Year
  Sex: Male

DRUGS (1)
  1. INFLIXIMAB [Suspect]
     Active Substance: INFLIXIMAB
     Indication: Crohn^s disease
     Dosage: 5 MG/KG BY INFUSION SCHEDULED ACCORDING TO THE INDUCTION SCHEME (0.2.6 WEEKS)
     Route: 041
     Dates: start: 20220811, end: 20220811

REACTIONS (3)
  - Dyspnoea [Recovered/Resolved]
  - Palpitations [Recovered/Resolved]
  - Laryngeal oedema [Recovered/Resolved]

NARRATIVE: CASE EVENT DATE: 20220811
